FAERS Safety Report 10689020 (Version 2)
Quarter: 2015Q1

REPORT INFORMATION
  Report Type: Spontaneous
  Country: None (occurrence: JP)
  Receive Date: 20150104
  Receipt Date: 20150126
  Transmission Date: 20150720
  Serious: Yes (Death, Other)
  Sender: FDA-Public Use
  Company Number: JP-TEVA-532088ISR

PATIENT
  Age: 73 Year
  Sex: Female
  Weight: 55 kg

DRUGS (3)
  1. IFOSFAMIDE. [Suspect]
     Active Substance: IFOSFAMIDE
     Indication: NATURAL KILLER-CELL LEUKAEMIA
     Dosage: 2 CYCLES
  2. CARBOPLATIN. [Suspect]
     Active Substance: CARBOPLATIN
     Indication: NATURAL KILLER-CELL LEUKAEMIA
     Dosage: 2 CYCLES
  3. ETOPOSIDE. [Suspect]
     Active Substance: ETOPOSIDE
     Indication: NATURAL KILLER-CELL LEUKAEMIA
     Dosage: 2 CYCLES

REACTIONS (3)
  - Neoplasm skin [Unknown]
  - Bone marrow failure [Unknown]
  - Death [Fatal]
